FAERS Safety Report 8473625-4 (Version None)
Quarter: 2012Q2

REPORT INFORMATION
  Report Type: 
  Country: None (occurrence: None)
  Receive Date: 20120628
  Receipt Date: 20110812
  Transmission Date: 20120825
  Serious: Yes (Death)
  Sender: FDA-Public Use
  Company Number: US-MYLANLABS-2011S1014801

PATIENT
  Age: 49 Year
  Sex: Female
  Weight: 95.26 kg

DRUGS (20)
  1. METFORMIN HCL [Concomitant]
     Dates: start: 20090630
  2. METOPROLOL TARTRATE [Concomitant]
     Route: 048
     Dates: start: 20110328
  3. COMBIVENT [Concomitant]
     Route: 055
     Dates: start: 20110328
  4. TRICOR [Concomitant]
     Dates: start: 20090630
  5. SINGULAIR [Concomitant]
     Dates: start: 20090630
  6. PREDNISONE TAB [Concomitant]
     Dosage: 30MG QAM X 5 DAYS, THEN 20MG QAM X 5 DAYS
     Route: 048
     Dates: start: 20110328
  7. B-INSULIN /01223401/ [Concomitant]
     Dates: start: 20090706
  8. ABILIFY [Concomitant]
     Dates: start: 20090630
  9. HYDROCORTISONE CREAM [Concomitant]
     Indication: RASH
     Route: 061
     Dates: start: 20090630
  10. PRENATAL /06041401/ [Concomitant]
     Dates: start: 20090630
  11. LORATADINE [Concomitant]
     Dates: start: 20090630
  12. XANAX [Concomitant]
     Dosage: 1 TO 2 TABS DAILY
     Dates: start: 20090630
  13. FUROSEMIDE [Concomitant]
     Route: 048
     Dates: start: 20110328
  14. TRIAMCINOLONE ACETONIDE [Concomitant]
     Indication: RASH
     Dates: start: 20090630
  15. CLOZAPINE [Suspect]
     Route: 048
  16. EFFEXOR [Concomitant]
     Dates: start: 20100913
  17. KLOR-CON [Concomitant]
     Route: 048
     Dates: start: 20110328
  18. AVAPRO [Concomitant]
     Route: 048
     Dates: start: 20090630
  19. INSULIN [Concomitant]
     Dates: start: 20090630
  20. LEVAQUIN [Concomitant]
     Route: 048
     Dates: start: 20110328

REACTIONS (1)
  - MYOCARDIAL INFARCTION [None]
